FAERS Safety Report 20818227 (Version 1)
Quarter: 2022Q2

REPORT INFORMATION
  Report Type: Spontaneous
  Country: US (occurrence: None)
  Receive Date: 20220511
  Receipt Date: 20220511
  Transmission Date: 20220720
  Serious: Yes (Death)
  Sender: FDA-Public Use
  Company Number: None

PATIENT
  Sex: Male
  Weight: 80.74 kg

DRUGS (16)
  1. BRAFTOVI [Suspect]
     Active Substance: ENCORAFENIB
     Indication: Malignant melanoma
     Dosage: FREQUENCY : DAILY;?
     Route: 048
  2. MEKTOVI [Suspect]
     Active Substance: BINIMETINIB
     Indication: Malignant melanoma
  3. ASPIRIN [Concomitant]
  4. CIMETIDINE [Concomitant]
  5. FISH OIL [Concomitant]
  6. FOLIC ACID [Concomitant]
  7. NORCO [Concomitant]
  8. MELOXICM [Concomitant]
  9. MASALAMINE [Concomitant]
  10. MYCOPHONLAT [Concomitant]
  11. PLAVIX [Concomitant]
  12. PREDNISONE [Concomitant]
  13. PROBIOTIC [Concomitant]
  14. PROCHLORPERAZINE [Concomitant]
  15. TRAZODONE [Concomitant]
  16. VITAMIN B-C COMPLEX [Concomitant]

REACTIONS (1)
  - Death [None]
